FAERS Safety Report 9388938 (Version 2)
Quarter: 2014Q2

REPORT INFORMATION
  Report Type: Spontaneous
  Country: US (occurrence: US)
  Receive Date: 20130708
  Receipt Date: 20140408
  Transmission Date: 20141212
  Serious: Yes (Other)
  Sender: FDA-Public Use
  Company Number: US-PFIZER INC-2013197185

PATIENT
  Age: 82 Year
  Sex: Female
  Weight: 65.76 kg

DRUGS (9)
  1. TOVIAZ [Suspect]
     Indication: POLLAKIURIA
     Dosage: 4 MG, 1X/DAY
     Dates: start: 2013
  2. DETROL [Suspect]
     Indication: FLUSHING
     Dosage: UNK
     Dates: start: 2013
  3. DETROL [Suspect]
     Indication: PRURITUS
  4. ACETYLSALICYLIC ACID [Concomitant]
     Dosage: UNK
  5. BENICAR [Concomitant]
     Dosage: UNK
  6. OXYCONTIN [Concomitant]
     Dosage: 15 MG, UNK
  7. OXYCODONE [Concomitant]
     Dosage: UNK
  8. TRIAZOLAM [Concomitant]
     Indication: SLEEP DISORDER
     Dosage: UNK
  9. VITAMIN D [Concomitant]
     Dosage: UNK

REACTIONS (5)
  - Road traffic accident [Unknown]
  - Malaise [Unknown]
  - Pruritus [Not Recovered/Not Resolved]
  - Flushing [Not Recovered/Not Resolved]
  - Drug ineffective for unapproved indication [Unknown]
